FAERS Safety Report 4474077-1 (Version None)
Quarter: 2004Q4

REPORT INFORMATION
  Report Type: 
  Country: None (occurrence: None)
  Receive Date: 20041008
  Receipt Date: 20040917
  Transmission Date: 20050328
  Serious: Yes (Hospitalization)
  Sender: FDA-Public Use
  Company Number: USA031050717

PATIENT
  Age: 9 Year
  Sex: Male
  Weight: 77 kg

DRUGS (4)
  1. STRATTERA [Suspect]
     Indication: ATTENTION DEFICIT/HYPERACTIVITY DISORDER
     Dosage: 25 MG DAY
     Dates: start: 20030929
  2. CLONIDINE HCL [Concomitant]
  3. ADDERALL 20 [Concomitant]
  4. .... [Concomitant]

REACTIONS (9)
  - ABNORMAL BEHAVIOUR [None]
  - DECREASED APPETITE [None]
  - DRUG INTERACTION [None]
  - DRUG TOXICITY [None]
  - DYSKINESIA [None]
  - FEAR [None]
  - HALLUCINATION, VISUAL [None]
  - INSOMNIA [None]
  - SPEECH DISORDER [None]
